FAERS Safety Report 4865013-4 (Version None)
Quarter: 2005Q4

REPORT INFORMATION
  Report Type: 
  Country: None (occurrence: None)
  Receive Date: 20051223
  Receipt Date: 20051205
  Transmission Date: 20060501
  Serious: Yes (Other)
  Sender: FDA-Public Use
  Company Number: PHEH2005US13219

PATIENT
  Age: 82 Year
  Sex: Male

DRUGS (5)
  1. ZOMETA [Suspect]
     Indication: METASTATIC RENAL CELL CARCINOMA
     Dosage: MONTHLY
     Dates: start: 20050722, end: 20051001
  2. ZOMETA [Suspect]
     Dates: start: 20051101
  3. INDERAL [Concomitant]
  4. ENALAPRIL [Concomitant]
  5. DIGOXIN [Concomitant]

REACTIONS (5)
  - BONE OPERATION [None]
  - JAW DISORDER [None]
  - PATHOLOGICAL FRACTURE [None]
  - REFUSAL OF TREATMENT BY PATIENT [None]
  - TOOTHACHE [None]
